FAERS Safety Report 18668164 (Version 1)
Quarter: 2020Q4

REPORT INFORMATION
  Report Type: Spontaneous
  Country: RO (occurrence: RO)
  Receive Date: 20201228
  Receipt Date: 20201228
  Transmission Date: 20210114
  Serious: Yes (Other)
  Sender: FDA-Public Use
  Company Number: RO-ASTELLAS-2020US045460

PATIENT
  Age: 25 Year
  Sex: Female

DRUGS (3)
  1. TACROLIMUS SYSTEMIC [Suspect]
     Active Substance: TACROLIMUS
     Dosage: UNK UNK, UNKNOWN FREQ.
     Route: 065
  2. TACROLIMUS SYSTEMIC [Suspect]
     Active Substance: TACROLIMUS
     Indication: LIVER TRANSPLANT
     Dosage: UNK UNK, UNKNOWN FREQ.
     Route: 065
  3. SOLU-MEDROL [Concomitant]
     Active Substance: METHYLPREDNISOLONE SODIUM SUCCINATE
     Indication: PRODUCT USED FOR UNKNOWN INDICATION
     Dosage: UNK UNK, UNKNOWN FREQ.
     Route: 065

REACTIONS (3)
  - Premature delivery [Unknown]
  - Maternal exposure during pregnancy [Unknown]
  - Drug ineffective [Unknown]

NARRATIVE: CASE EVENT DATE: 2016
